FAERS Safety Report 4301836-8 (Version None)
Quarter: 2004Q1

REPORT INFORMATION
  Report Type: 
  Country: None (occurrence: None)
  Receive Date: 20040126
  Receipt Date: 20031007
  Transmission Date: 20041129
  Serious: No
  Sender: FDA-Public Use
  Company Number: USA031049285

PATIENT
  Age: 4 Year

DRUGS (1)
  1. STRATTERA [Suspect]
     Dosage: 18 MG/DAY

REACTIONS (1)
  - PYREXIA [None]
